FAERS Safety Report 17133342 (Version 1)
Quarter: 2019Q4

REPORT INFORMATION
  Report Type: Report from Study
  Country: ES (occurrence: ES)
  Receive Date: 20191210
  Receipt Date: 20191210
  Transmission Date: 20200122
  Serious: Yes (Hospitalization)
  Sender: FDA-Public Use
  Company Number: ES-TEVA-2019-ES-1148233

PATIENT
  Age: 64 Year
  Sex: Female

DRUGS (4)
  1. ATORVASTATINA (7400A) [Concomitant]
     Active Substance: ATORVASTATIN
     Indication: DYSLIPIDAEMIA
     Dosage: 10 MG
     Route: 048
     Dates: start: 20170615, end: 20171030
  2. PREDNISONA (886A) [Suspect]
     Active Substance: PREDNISONE
     Indication: KIDNEY TRANSPLANT REJECTION
     Dosage: 5 MG
     Route: 048
     Dates: start: 20170615
  3. CELLCEPT [Interacting]
     Active Substance: MYCOPHENOLATE MOFETIL\MYCOPHENOLATE MOFETIL HYDROCHLORIDE
     Indication: KIDNEY TRANSPLANT REJECTION
     Dosage: 1 GM
     Route: 048
     Dates: start: 20170615, end: 20171030
  4. ADOPORT 2 MG CAPSULAS DURAS , 30 C?PSULAS [Interacting]
     Active Substance: TACROLIMUS
     Indication: KIDNEY TRANSPLANT REJECTION
     Dosage: 8 MG
     Route: 048
     Dates: start: 20170615, end: 20171120

REACTIONS (2)
  - Drug interaction [Unknown]
  - Cytomegalovirus infection [Recovered/Resolved]

NARRATIVE: CASE EVENT DATE: 20171025
